FAERS Safety Report 18454910 (Version 1)
Quarter: 2020Q4

REPORT INFORMATION
  Report Type: Report from Study
  Country: US (occurrence: US)
  Receive Date: 20201102
  Receipt Date: 20201102
  Transmission Date: 20210114
  Serious: Yes (Other)
  Sender: FDA-Public Use
  Company Number: US-PFIZER INC-2020421919

PATIENT

DRUGS (3)
  1. ISOPROTERENOL HYDROCHLORIDE. [Concomitant]
     Active Substance: ISOPROTERENOL HYDROCHLORIDE
     Indication: CARDIAC ABLATION
     Dosage: 20 TO 30 UG/MIN FOR 10 MIN
  2. DOBUTAMINE HCL [Suspect]
     Active Substance: DOBUTAMINE HYDROCHLORIDE
     Indication: CARDIAC ABLATION
     Dosage: 40 TO 50 UG/KG/MIN FOR 10 MIN
  3. NOREPINEPHRINE BITARTRATE. [Interacting]
     Active Substance: NOREPINEPHRINE BITARTRATE
     Indication: HYPOTENSION
     Dosage: UNK

REACTIONS (2)
  - Drug interaction [Recovered/Resolved]
  - Hypertension [Recovered/Resolved]
